FAERS Safety Report 5507632-8 (Version None)
Quarter: 2007Q4

REPORT INFORMATION
  Report Type: 
  Country: None (occurrence: None)
  Receive Date: 20071105
  Receipt Date: 20071105
  Transmission Date: 20080405
  Serious: No
  Sender: FDA-Public Use
  Company Number: None

PATIENT
  Age: 46 Year
  Sex: Female

DRUGS (1)
  1. OMNIPAQUE 300 [Suspect]
     Indication: IMPAIRED GASTRIC EMPTYING
     Dosage: 100 ML  ONE TIME   IV

REACTIONS (2)
  - PRURITUS [None]
  - URTICARIA [None]
